FAERS Safety Report 14588487 (Version 1)
Quarter: 2018Q1

REPORT INFORMATION
  Report Type: Spontaneous
  Country: CA (occurrence: CA)
  Receive Date: 20180301
  Receipt Date: 20180301
  Transmission Date: 20180509
  Serious: Yes (Other)
  Sender: FDA-Public Use
  Company Number: CA-GLAXOSMITHKLINE-CA2018GSK033544

PATIENT
  Age: 81 Year
  Sex: Female
  Weight: 55 kg

DRUGS (1)
  1. FLOVENT HFA [Suspect]
     Active Substance: FLUTICASONE PROPIONATE
     Indication: COUGH
     Dosage: 1 PUFF(S), QD
     Route: 055

REACTIONS (8)
  - Arthralgia [Unknown]
  - Pruritus [Unknown]
  - Chest pain [Unknown]
  - Pain in extremity [Unknown]
  - Sensation of foreign body [Unknown]
  - Dysphagia [Unknown]
  - Fatigue [Unknown]
  - Malaise [Unknown]
